APPROVED DRUG PRODUCT: PHYTONADIONE
Active Ingredient: PHYTONADIONE
Strength: 10MG/ML
Dosage Form/Route: INJECTABLE;INJECTION
Application: A215090 | Product #001 | TE Code: AB1
Applicant: SUNNY PHARMTECH INC
Approved: Jan 9, 2026 | RLD: No | RS: No | Type: RX